FAERS Safety Report 8469434-2 (Version None)
Quarter: 2012Q2

REPORT INFORMATION
  Report Type: 
  Country: None (occurrence: None)
  Receive Date: 20120626
  Receipt Date: 20120620
  Transmission Date: 20120825
  Serious: Yes (Other)
  Sender: FDA-Public Use
  Company Number: US-PFIZER INC-2012147212

PATIENT
  Sex: Male
  Weight: 58.957 kg

DRUGS (2)
  1. ATORVASTATIN CALCIUM [Suspect]
     Indication: BLOOD CHOLESTEROL INCREASED
     Dosage: 40 MG, 1X/DAY
     Dates: start: 20120201
  2. LIPITOR [Suspect]
     Dosage: UNK
     Route: 048

REACTIONS (4)
  - DEMENTIA [None]
  - INFECTION [None]
  - POOR PERIPHERAL CIRCULATION [None]
  - GOUT [None]
